FAERS Safety Report 10721818 (Version 3)
Quarter: 2015Q1

REPORT INFORMATION
  Report Type: Spontaneous
  Country: US (occurrence: US)
  Receive Date: 20150119
  Receipt Date: 20150311
  Transmission Date: 20150721
  Serious: Yes (Hospitalization)
  Sender: FDA-Public Use
  Company Number: US-UNITED THERAPEUTICS-UNT-2015-000341

PATIENT
  Age: 79 Year
  Sex: Female
  Weight: 45.35 kg

DRUGS (4)
  1. ADCIRCA [Concomitant]
     Active Substance: TADALAFIL
     Indication: PRODUCT USED FOR UNKNOWN INDICATION
  2. TYVASO [Suspect]
     Active Substance: TREPROSTINIL
     Dosage: 18-72 ?G QID
  3. COUMADIN [Concomitant]
     Active Substance: WARFARIN SODIUM
     Indication: PRODUCT USED FOR UNKNOWN INDICATION
  4. TYVASO [Suspect]
     Active Substance: TREPROSTINIL
     Indication: PULMONARY ARTERIAL HYPERTENSION
     Dosage: 18-72 ?G QID
     Dates: start: 20120208

REACTIONS (10)
  - Contusion [Unknown]
  - Fall [Unknown]
  - Urinary tract infection [Unknown]
  - Thrombosis [Unknown]
  - Confusional state [Unknown]
  - Dehydration [Unknown]
  - Pain in extremity [Unknown]
  - Diarrhoea [Unknown]
  - Haemorrhage [Unknown]
  - Medication error [Unknown]

NARRATIVE: CASE EVENT DATE: 201412
